FAERS Safety Report 5662895-3 (Version None)
Quarter: 2008Q1

REPORT INFORMATION
  Report Type: 
  Country: None (occurrence: None)
  Receive Date: 20080313
  Receipt Date: 20080304
  Transmission Date: 20080703
  Serious: Yes (Other)
  Sender: FDA-Public Use
  Company Number: US-ROCHE-551237

PATIENT
  Age: 51 Year
  Sex: Male
  Weight: 56.2 kg

DRUGS (4)
  1. PEG-INTERFERON A-2A (RO 25-8310) [Suspect]
     Route: 065
     Dates: start: 20080108
  2. RIBAVIRIN [Suspect]
     Route: 065
     Dates: start: 20080108, end: 20080225
  3. RIBAVIRIN [Suspect]
     Route: 065
     Dates: start: 20080226, end: 20080302
  4. RIBAVIRIN [Suspect]
     Route: 065
     Dates: start: 20080303

REACTIONS (1)
  - HEPATIC NEOPLASM MALIGNANT [None]
